FAERS Safety Report 12124131 (Version 1)
Quarter: 2016Q1

REPORT INFORMATION
  Report Type: Spontaneous
  Country: IT (occurrence: IT)
  Receive Date: 20160229
  Receipt Date: 20160229
  Transmission Date: 20160526
  Serious: Yes (Hospitalization)
  Sender: FDA-Public Use
  Company Number: IT-009507513-1602ITA012167

PATIENT
  Age: 61 Year
  Sex: Female

DRUGS (5)
  1. DEPAKIN [Concomitant]
     Active Substance: VALPROATE SODIUM
     Dosage: 600 MG
     Route: 048
  2. SEROQUEL [Concomitant]
     Active Substance: QUETIAPINE FUMARATE
     Dosage: 100 MG
     Route: 048
  3. CACIT VITAMINE D3 [Concomitant]
     Active Substance: CALCIUM CARBONATE\CHOLECALCIFEROL
     Route: 048
  4. SERENASE [Concomitant]
     Active Substance: HALOPERIDOL
     Dosage: UNK, ORAL DROPS, 3 DROPS
     Route: 048
  5. MIRTAZAPINE. [Suspect]
     Active Substance: MIRTAZAPINE
     Dosage: TOTAL DAILY DOSE: 300 MG
     Route: 048
     Dates: start: 20151224, end: 20151224

REACTIONS (2)
  - Poverty of speech [Recovering/Resolving]
  - Sopor [Recovering/Resolving]

NARRATIVE: CASE EVENT DATE: 20151224
